FAERS Safety Report 4664728-0 (Version None)
Quarter: 2005Q2

REPORT INFORMATION
  Report Type: 
  Country: None (occurrence: None)
  Receive Date: 20050516
  Receipt Date: 20050504
  Transmission Date: 20051028
  Serious: Yes (Hospitalization, Other)
  Sender: FDA-Public Use
  Company Number: GBWYE640304MAY05

PATIENT
  Age: 27 Year
  Sex: Male

DRUGS (3)
  1. ADVIL [Suspect]
     Indication: PAIN
     Dosage: 400 MG 2X PER 1 DAY, ORAL
     Route: 048
     Dates: start: 20050101, end: 20050201
  2. ZANTAC [Concomitant]
  3. LACTULOSE [Concomitant]

REACTIONS (2)
  - HAEMOGLOBIN DECREASED [None]
  - RECTAL HAEMORRHAGE [None]
